FAERS Safety Report 4292270-8 (Version None)
Quarter: 2004Q1

REPORT INFORMATION
  Report Type: 
  Country: None (occurrence: None)
  Receive Date: 20040211
  Receipt Date: 20020402
  Transmission Date: 20041129
  Serious: Yes (Hospitalization)
  Sender: FDA-Public Use
  Company Number: NO-ROCHE-310540

PATIENT
  Age: 26 Year
  Sex: Female
  Weight: 80 kg

DRUGS (15)
  1. DACLIZUMAB [Suspect]
     Route: 042
     Dates: start: 20010531, end: 20010531
  2. DACLIZUMAB [Suspect]
     Dosage: FOR A TOTAL OF 4 DOSES.
     Route: 042
     Dates: start: 20010614, end: 20010726
  3. MYCOPHENOLATE MOFETIL [Suspect]
     Route: 048
     Dates: start: 20010531
  4. PREDNISOLONE [Concomitant]
     Dates: start: 20010331
  5. NEORAL [Concomitant]
  6. TACROLIMUS [Concomitant]
     Dates: start: 20010912
  7. AMLODIPIN [Concomitant]
     Dates: start: 20010704
  8. ESOMEPRAZOLE [Concomitant]
     Dates: start: 20010820
  9. CARISOPRODOL [Concomitant]
     Dates: start: 20010531
  10. FUROSEMIDE [Concomitant]
     Dates: start: 20010531
  11. PARALGIN FORTE [Concomitant]
     Dates: start: 20011217
  12. TRIMETOPRIM-SULFA [Concomitant]
     Dates: start: 20010531
  13. LEVOMEPROMAZIN [Concomitant]
     Dates: start: 20010531
  14. HYDROXYZIN [Concomitant]
     Dates: start: 20010531
  15. NEORAL [Concomitant]
     Dates: start: 20010910, end: 20010911

REACTIONS (3)
  - ABDOMINAL PAIN [None]
  - HERPES ZOSTER [None]
  - URINARY TRACT INFECTION [None]
